FAERS Safety Report 9181262 (Version 2)
Quarter: 2013Q1

REPORT INFORMATION
  Report Type: Spontaneous
  Country: US (occurrence: US)
  Receive Date: 20130322
  Receipt Date: 20130322
  Transmission Date: 20140127
  Serious: No
  Sender: FDA-Public Use
  Company Number: US-MYLANLABS-2012S1025243

PATIENT
  Age: 55 Year
  Sex: Female
  Weight: 52.16 kg

DRUGS (6)
  1. EMSAM [Suspect]
     Indication: DEPRESSION
     Route: 062
     Dates: start: 20120814
  2. ROZEREM [Concomitant]
  3. LAMICTAL [Concomitant]
  4. DEXTROSTAT [Concomitant]
  5. KLONOPIN [Concomitant]
     Dosage: PRN
  6. CALCIUM [Concomitant]

REACTIONS (3)
  - Application site erythema [Recovered/Resolved]
  - Application site pruritus [Recovered/Resolved]
  - Application site rash [Recovered/Resolved]
